FAERS Safety Report 22619760 (Version 1)
Quarter: 2023Q2

REPORT INFORMATION
  Report Type: Spontaneous
  Country: IT (occurrence: None)
  Receive Date: 20230620
  Receipt Date: 20230620
  Transmission Date: 20230722
  Serious: Yes (Hospitalization)
  Sender: FDA-Public Use
  Company Number: 2023A138458

PATIENT
  Age: 24 Year
  Sex: Female

DRUGS (3)
  1. QUETIAPINE [Suspect]
     Active Substance: QUETIAPINE
     Dosage: DOSAGE: 800 UNIT OF MEASUREMENT: MILLIGRAMS FREQUENCY OF ADMINISTRATION: TOTAL ROUTE OF ADMINISTR...
     Route: 048
     Dates: start: 20230423
  2. ANAFRANIL [Suspect]
     Active Substance: CLOMIPRAMINE HYDROCHLORIDE
     Dosage: DOSAGE: 300 UNIT OF MEASUREMENT: MILLIGRAMS FREQUENCY OF ADMINISTRATION: TOTAL ROUTE OF ADMINISTR...
     Route: 048
     Dates: start: 20230423
  3. DICLOFENAC SODIUM [Suspect]
     Active Substance: DICLOFENAC SODIUM
     Dosage: DOSAGE: 3 UNIT OF MEASUREMENT: DOSOLOGICAL UNIT ADMINISTRATION FREQUENCY: TOTAL ADMINISTRATION RO...
     Route: 048
     Dates: start: 20230423

REACTIONS (3)
  - Sopor [Recovering/Resolving]
  - Sinus tachycardia [Recovering/Resolving]
  - Drug abuse [Recovering/Resolving]

NARRATIVE: CASE EVENT DATE: 20230423
